FAERS Safety Report 8222891-9 (Version None)
Quarter: 2012Q1

REPORT INFORMATION
  Report Type: 
  Country: None (occurrence: None)
  Receive Date: 20120320
  Receipt Date: 20120312
  Transmission Date: 20120608
  Serious: Yes (Other)
  Sender: FDA-Public Use
  Company Number: JP-FRI-1000029186

PATIENT
  Age: 33 Year
  Sex: Male

DRUGS (4)
  1. RIZE [Concomitant]
     Dosage: 10 MG, 5 MG
     Route: 048
  2. GOODMIN [Concomitant]
     Dosage: 0.25 MG
     Route: 048
  3. LEXAPRO [Suspect]
     Indication: DEPRESSION
     Dosage: 10 MG
     Route: 048
     Dates: start: 20111210, end: 20120312
  4. ZOLPIDEM [Concomitant]
     Dosage: 10 MG
     Route: 048

REACTIONS (1)
  - BLOOD CREATINE PHOSPHOKINASE INCREASED [None]
